FAERS Safety Report 6814026-1 (Version None)
Quarter: 2010Q3

REPORT INFORMATION
  Report Type: 
  Country: None (occurrence: None)
  Receive Date: 20100702
  Receipt Date: 20100622
  Transmission Date: 20110219
  Serious: Yes (Other)
  Sender: FDA-Public Use
  Company Number: PHHY2010BR34654

PATIENT
  Sex: Female

DRUGS (5)
  1. EXELON [Suspect]
     Indication: DEMENTIA ALZHEIMER'S TYPE
     Dosage: 3 MG
     Route: 048
     Dates: start: 20030101
  2. PURAN T4 [Concomitant]
     Route: 048
  3. CITALOPRAM HYDROBROMIDE [Concomitant]
     Dosage: UNK
     Route: 048
  4. SEROQUEL [Concomitant]
     Dosage: UNK
     Route: 048
  5. ZOLPIDEM [Concomitant]
     Dosage: UNK
     Route: 048

REACTIONS (6)
  - APATHY [None]
  - DISTRACTIBILITY [None]
  - HYPERHIDROSIS [None]
  - LOWER LIMB FRACTURE [None]
  - MASKED FACIES [None]
  - MENTAL DISORDER [None]
